FAERS Safety Report 9105352 (Version 1)
Quarter: 2013Q1

REPORT INFORMATION
  Report Type: Spontaneous
  Country: GB (occurrence: GB)
  Receive Date: 20130220
  Receipt Date: 20130220
  Transmission Date: 20140127
  Serious: Yes (Other)
  Sender: FDA-Public Use
  Company Number: GB-009507513-1302GBR008362

PATIENT
  Age: 67 Year
  Sex: Female

DRUGS (4)
  1. ALENDRONATE SODIUM [Suspect]
     Indication: OSTEOPOROSIS
  2. TERIPARATIDE [Suspect]
     Indication: OSTEOPOROSIS
  3. PREDNISOLONE [Concomitant]
  4. ALFACALCIDOL [Concomitant]

REACTIONS (2)
  - Fracture [Unknown]
  - Drug ineffective [Unknown]
